FAERS Safety Report 16777817 (Version 1)
Quarter: 2019Q3

REPORT INFORMATION
  Report Type: Report from Study
  Country: BR (occurrence: BR)
  Receive Date: 20190905
  Receipt Date: 20190905
  Transmission Date: 20191005
  Serious: Yes (Other)
  Sender: FDA-Public Use
  Company Number: PHHY2015BR069268

PATIENT
  Sex: Female
  Weight: 73 kg

DRUGS (1)
  1. SANDOSTATIN LAR DEPOT [Suspect]
     Active Substance: OCTREOTIDE ACETATE
     Indication: ACROMEGALY
     Dosage: UNK UNK, EVERY 28 DAYS
     Route: 065
     Dates: start: 201504, end: 2018

REACTIONS (8)
  - Cardiac failure [Unknown]
  - Depressed mood [Unknown]
  - Blood cholesterol abnormal [Unknown]
  - Application site pain [Unknown]
  - Visual impairment [Not Recovered/Not Resolved]
  - Weight increased [Not Recovered/Not Resolved]
  - Application site mass [Unknown]
  - Ocular hypertension [Unknown]
